FAERS Safety Report 5554291-4 (Version None)
Quarter: 2007Q4

REPORT INFORMATION
  Report Type: 
  Country: None (occurrence: None)
  Receive Date: 20071213
  Receipt Date: 20071212
  Transmission Date: 20080405
  Serious: Yes (Other)
  Sender: FDA-Public Use
  Company Number: B0499449A

PATIENT
  Age: 55 Year
  Sex: Female
  Weight: 54 kg

DRUGS (2)
  1. RANITIDINE HCL [Suspect]
     Dosage: 50MG SINGLE DOSE
     Route: 042
     Dates: start: 20071115, end: 20071115
  2. CHLORPHENIRAMINE TAB [Suspect]
     Dosage: 10MG SINGLE DOSE
     Route: 042
     Dates: start: 20071115, end: 20071115

REACTIONS (3)
  - BRADYCARDIA [None]
  - DIZZINESS [None]
  - HYPOTENSION [None]
